FAERS Safety Report 4694125-3 (Version None)
Quarter: 2005Q2

REPORT INFORMATION
  Report Type: 
  Country: None (occurrence: None)
  Receive Date: 20050617
  Receipt Date: 20050617
  Transmission Date: 20051028
  Serious: Yes (Other)
  Sender: FDA-Public Use
  Company Number: None

PATIENT
  Sex: Male
  Weight: 74.55 kg

DRUGS (3)
  1. PACLITAXEL [Suspect]
     Indication: OESOPHAGEAL CARCINOMA
     Dates: start: 20050509
  2. FLUOROURACIL [Suspect]
  3. CISPLATIN [Suspect]

REACTIONS (3)
  - CHEST DISCOMFORT [None]
  - ELECTROCARDIOGRAM T WAVE INVERSION [None]
  - MUSCLE SPASMS [None]
